FAERS Safety Report 17956863 (Version 1)
Quarter: 2020Q2

REPORT INFORMATION
  Report Type: Spontaneous
  Country: US (occurrence: US)
  Receive Date: 20200629
  Receipt Date: 20200629
  Transmission Date: 20200714
  Serious: Yes (Other)
  Sender: FDA-Public Use
  Company Number: None

PATIENT
  Age: 61 Year
  Sex: Male
  Weight: 71.3 kg

DRUGS (7)
  1. MULTIVITAMIN WITH MINERALS PO DAILY [Concomitant]
     Dates: start: 20200626
  2. IOHEXOL (OMNIPAQUE) 90 ML IV X 1 [Concomitant]
     Dates: start: 20200626
  3. REMDESIVIR. [Suspect]
     Active Substance: REMDESIVIR
     Indication: COVID-19
     Route: 042
     Dates: start: 20200627, end: 20200628
  4. DEXAMETHASONE 6 MG IVP DAILY [Concomitant]
     Dates: start: 20200626
  5. CEFTRIAXONE 2 GM IVPB DAILY [Concomitant]
     Dates: start: 20200626
  6. DOXYCYCLINE 100 MG PO TWICE DAILY [Concomitant]
     Dates: start: 20200626
  7. ENOXAPARIN 70 MG SQ TWICE DAILY [Concomitant]
     Dates: start: 20200626

REACTIONS (4)
  - Respiratory failure [None]
  - Alanine aminotransferase increased [None]
  - COVID-19 pneumonia [None]
  - Aspartate aminotransferase increased [None]

NARRATIVE: CASE EVENT DATE: 20200628
